FAERS Safety Report 5477320-5 (Version None)
Quarter: 2007Q4

REPORT INFORMATION
  Report Type: 
  Country: None (occurrence: None)
  Receive Date: 20071004
  Receipt Date: 20071003
  Transmission Date: 20080405
  Serious: Yes (Hospitalization)
  Sender: FDA-Public Use
  Company Number: US-ASTRAZENECA-2007UW19925

PATIENT
  Age: 20217 Day
  Sex: Female
  Weight: 123.6 kg

DRUGS (3)
  1. TOPROL-XL [Suspect]
     Indication: HYPERTENSION
     Route: 048
     Dates: start: 20070803
  2. TOPROL-XL [Suspect]
     Route: 048
  3. TYLENOL (CAPLET) [Concomitant]
     Indication: HEADACHE
     Route: 048
     Dates: start: 20070312

REACTIONS (2)
  - CARDIOMEGALY [None]
  - PNEUMONIA [None]
